FAERS Safety Report 24073044 (Version 3)
Quarter: 2024Q3

REPORT INFORMATION
  Report Type: Report from Study
  Country: US (occurrence: US)
  Receive Date: 20240710
  Receipt Date: 20240816
  Transmission Date: 20241017
  Serious: Yes (Hospitalization, Other)
  Sender: INSMED
  Company Number: US-INSMED-2024-01604-USAA

PATIENT
  Sex: Female

DRUGS (6)
  1. ARIKAYCE [Suspect]
     Active Substance: AMIKACIN
     Indication: Mycobacterium avium complex infection
     Dosage: 590 MILLIGRAM, QD
     Route: 055
     Dates: start: 202006, end: 2021
  2. ARIKAYCE [Suspect]
     Active Substance: AMIKACIN
     Dosage: 590 MILLIGRAM, QD
     Route: 055
     Dates: start: 20240515, end: 2024
  3. POSACONAZOLE [Suspect]
     Active Substance: POSACONAZOLE
     Indication: Product used for unknown indication
     Dosage: UNK, TID
     Route: 065
  4. POSACONAZOLE [Suspect]
     Active Substance: POSACONAZOLE
     Dosage: UNK, BID
     Route: 065
  5. ALBUTEROL [Concomitant]
     Active Substance: ALBUTEROL
     Indication: Product used for unknown indication
     Dosage: UNK, UNK
     Route: 065
  6. LEVALBUTEROL [Concomitant]
     Active Substance: LEVALBUTEROL
     Indication: Product used for unknown indication
     Dosage: UNK, UNK
     Route: 055

REACTIONS (16)
  - Hospitalisation [Unknown]
  - Hospitalisation [Unknown]
  - Myopia [Unknown]
  - Fungal infection [Unknown]
  - Rehabilitation therapy [Unknown]
  - Joint swelling [Not Recovered/Not Resolved]
  - Peripheral swelling [Not Recovered/Not Resolved]
  - Swelling [Unknown]
  - Hepatic enzyme increased [Unknown]
  - Chapped lips [Unknown]
  - Drug level increased [Unknown]
  - Hypertension [Unknown]
  - Dysphonia [Not Recovered/Not Resolved]
  - Cough [Unknown]
  - Therapy interrupted [Unknown]
  - Device issue [Unknown]

NARRATIVE: CASE EVENT DATE: 20240101
